FAERS Safety Report 13780530 (Version 1)
Quarter: 2017Q3

REPORT INFORMATION
  Report Type: Spontaneous
  Country: RS (occurrence: RS)
  Receive Date: 20170724
  Receipt Date: 20170724
  Transmission Date: 20171127
  Serious: Yes (Death, Other)
  Sender: FDA-Public Use
  Company Number: RS-ROCHE-1964178

PATIENT
  Age: 66 Year
  Sex: Female

DRUGS (9)
  1. METHOTREXATE. [Suspect]
     Active Substance: METHOTREXATE
     Indication: RHEUMATOID ARTHRITIS
     Route: 065
     Dates: start: 201212, end: 201307
  2. FOLAN [Concomitant]
     Active Substance: FOLIC ACID
     Route: 048
     Dates: start: 201205
  3. OMEPROL [Concomitant]
     Active Substance: OMEPRAZOLE
     Route: 048
  4. ACTEMRA [Suspect]
     Active Substance: TOCILIZUMAB
     Dosage: 6 MG/KG
     Route: 042
     Dates: start: 201312, end: 201404
  5. ACTEMRA [Suspect]
     Active Substance: TOCILIZUMAB
     Indication: RHEUMATOID ARTHRITIS
     Dosage: 8 MG/KG
     Route: 042
     Dates: start: 201304, end: 201312
  6. ACTEMRA [Suspect]
     Active Substance: TOCILIZUMAB
     Dosage: 4MG/KG
     Route: 042
     Dates: start: 201404
  7. VIGANTOL [Concomitant]
     Active Substance: CHOLECALCIFEROL
     Route: 048
     Dates: start: 201205
  8. PRONISON [Suspect]
     Active Substance: PREDNISONE
     Route: 048
     Dates: start: 201402
  9. PRONISON [Suspect]
     Active Substance: PREDNISONE
     Indication: RHEUMATOID ARTHRITIS
     Route: 048
     Dates: start: 201205, end: 201402

REACTIONS (8)
  - Hip fracture [Fatal]
  - Haematuria [Unknown]
  - Fall [Fatal]
  - Leukopenia [Unknown]
  - Urinary tract infection [Recovered/Resolved]
  - Spinal compression fracture [Unknown]
  - Anaemia [Unknown]
  - Renal failure [Unknown]

NARRATIVE: CASE EVENT DATE: 201402
